FAERS Safety Report 6398797-7 (Version None)
Quarter: 2009Q4

REPORT INFORMATION
  Report Type: 
  Country: None (occurrence: None)
  Receive Date: 20091013
  Receipt Date: 20091002
  Transmission Date: 20100525
  Serious: Yes (Other)
  Sender: FDA-Public Use
  Company Number: JP-SANOFI-SYNTHELABO-A01200909089

PATIENT
  Sex: Female
  Weight: 40 kg

DRUGS (6)
  1. MYSLEE [Suspect]
     Indication: INSOMNIA
     Route: 048
     Dates: start: 20060101, end: 20090724
  2. RHYTHMY [Concomitant]
     Indication: INSOMNIA
     Dosage: UNK
     Route: 065
     Dates: start: 20060101, end: 20071218
  3. OMEPRAL [Concomitant]
     Indication: REFLUX OESOPHAGITIS
     Dosage: UNK
     Route: 048
     Dates: start: 20060501
  4. MEILAX [Concomitant]
     Indication: ANXIETY DISORDER
     Dosage: UNK
     Route: 065
     Dates: end: 20071218
  5. BIOFERMIN [Concomitant]
     Indication: DRUG USE FOR UNKNOWN INDICATION
     Dosage: UNK
     Route: 048
     Dates: start: 20060501
  6. MAG-LAX [Concomitant]
     Indication: CONSTIPATION
     Dosage: UNK
     Route: 048
     Dates: start: 20060501

REACTIONS (3)
  - AMNESIA [None]
  - COGNITIVE DISORDER [None]
  - ROAD TRAFFIC ACCIDENT [None]
